FAERS Safety Report 8330805-6 (Version None)
Quarter: 2012Q2

REPORT INFORMATION
  Report Type: 
  Country: None (occurrence: None)
  Receive Date: 20120502
  Receipt Date: 20120410
  Transmission Date: 20120825
  Serious: No
  Sender: FDA-Public Use
  Company Number: US-AMGEN-USASP2012022667

PATIENT
  Age: 63 Year
  Sex: Female

DRUGS (1)
  1. ENBREL [Suspect]
     Indication: RHEUMATOID ARTHRITIS
     Dosage: 50 MG, QWK
     Dates: start: 20060610, end: 20111201

REACTIONS (5)
  - SWELLING FACE [None]
  - FALL [None]
  - SINUSITIS [None]
  - TOOTH EXTRACTION [None]
  - WHITE BLOOD CELL COUNT DECREASED [None]
